FAERS Safety Report 7970566-3 (Version None)
Quarter: 2011Q4

REPORT INFORMATION
  Report Type: 
  Country: None (occurrence: None)
  Receive Date: 20111122
  Receipt Date: 20110817
  Transmission Date: 20120403
  Serious: No
  Sender: FDA-Public Use
  Company Number: PHEH2011US01983

PATIENT
  Age: 56 Year
  Sex: Female

DRUGS (1)
  1. GILENYA [Suspect]
     Indication: RELAPSING-REMITTING MULTIPLE SCLEROSIS
     Dosage: 0.5 MG, QD, ORAL
     Route: 048
     Dates: start: 20110816, end: 20110822

REACTIONS (5)
  - HYPOAESTHESIA [None]
  - VISUAL IMPAIRMENT [None]
  - CHEST DISCOMFORT [None]
  - NYSTAGMUS [None]
  - ABDOMINAL DISCOMFORT [None]
